FAERS Safety Report 17866977 (Version 1)
Quarter: 2020Q2

REPORT INFORMATION
  Report Type: Spontaneous
  Country: US (occurrence: US)
  Receive Date: 20200605
  Receipt Date: 20200605
  Transmission Date: 20200714
  Serious: Yes (Death, Life-Threatening, Hospitalization, Other)
  Sender: FDA-Public Use
  Company Number: US-AMGEN-USASP2020086674

PATIENT
  Age: 65 Year
  Sex: Male
  Weight: 98.4 kg

DRUGS (3)
  1. AZTREONAM. [Concomitant]
     Active Substance: AZTREONAM
  2. VANCOMYCIN [Concomitant]
     Active Substance: VANCOMYCIN
  3. FILGRASTIM [Suspect]
     Active Substance: FILGRASTIM
     Indication: NEUTROPENIA
     Dosage: 480 MICROGRAM
     Route: 058

REACTIONS (7)
  - Lung opacity [Unknown]
  - Death [Fatal]
  - Shock [Unknown]
  - Metabolic acidosis [Unknown]
  - COVID-19 [Unknown]
  - Atrial fibrillation [Unknown]
  - Hypoxia [Unknown]

NARRATIVE: CASE EVENT DATE: 2020
